FAERS Safety Report 10696375 (Version 2)
Quarter: 2015Q1

REPORT INFORMATION
  Report Type: Spontaneous
  Country: US (occurrence: US)
  Receive Date: 20150107
  Receipt Date: 20150107
  Transmission Date: 20150721
  Serious: No
  Sender: FDA-Public Use
  Company Number: US-BRISTOL-MYERS SQUIBB COMPANY-21542428

PATIENT
  Sex: Female
  Weight: 79.36 kg

DRUGS (1)
  1. BYDUREON [Suspect]
     Active Substance: EXENATIDE
     Indication: DIABETES MELLITUS
     Dosage: VIAL  INJECTION
     Route: 058

REACTIONS (4)
  - Inappropriate schedule of drug administration [Unknown]
  - Hypertension [Unknown]
  - Product quality issue [Unknown]
  - Drug dose omission [Unknown]
